FAERS Safety Report 5240350-2 (Version None)
Quarter: 2007Q1

REPORT INFORMATION
  Report Type: 
  Country: None (occurrence: None)
  Receive Date: 20061208
  Receipt Date: 20050304
  Transmission Date: 20070707
  Serious: Yes (Other)
  Sender: FDA-Public Use
  Company Number: 2005UW03585

PATIENT
  Age: 73 Year
  Sex: Female
  Weight: 63.502 kg

DRUGS (4)
  1. CRESTOR [Suspect]
     Indication: BLOOD CHOLESTEROL INCREASED
     Dosage: 10 MG PO
     Route: 048
     Dates: start: 20040701, end: 20050201
  2. VITAMIN E [Concomitant]
  3. SYNTHROID [Concomitant]
  4. LOTREL [Concomitant]

REACTIONS (2)
  - CHROMATURIA [None]
  - MUSCULAR WEAKNESS [None]
